FAERS Safety Report 7051231-6 (Version None)
Quarter: 2010Q4

REPORT INFORMATION
  Report Type: 
  Country: None (occurrence: None)
  Receive Date: 20101018
  Receipt Date: 20101018
  Transmission Date: 20110411
  Serious: No
  Sender: FDA-Public Use
  Company Number: None

PATIENT
  Age: 50 Year
  Sex: Male
  Weight: 90.7194 kg

DRUGS (1)
  1. LITHIUM CARBONATE [Suspect]
     Dosage: 750 MG DAILY PO
     Route: 048

REACTIONS (1)
  - CREATININE RENAL CLEARANCE INCREASED [None]
